FAERS Safety Report 6084712-2 (Version None)
Quarter: 2009Q1

REPORT INFORMATION
  Report Type: 
  Country: None (occurrence: None)
  Receive Date: 20090219
  Receipt Date: 20090209
  Transmission Date: 20090719
  Serious: Yes (Hospitalization, Other)
  Sender: FDA-Public Use
  Company Number: US-PFIZER INC-2007095446

PATIENT
  Sex: Female
  Weight: 78.005 kg

DRUGS (3)
  1. CHANTIX [Suspect]
     Indication: SMOKING CESSATION THERAPY
     Dosage: UNK
     Dates: start: 20071026, end: 20080901
  2. LEXAPRO [Concomitant]
     Indication: ANXIETY
  3. LEXAPRO [Concomitant]
     Indication: BIPOLAR DISORDER

REACTIONS (16)
  - ACTIVITIES OF DAILY LIVING IMPAIRED [None]
  - ANAEMIA [None]
  - ASTHMA [None]
  - BRONCHITIS [None]
  - CHEST WALL MASS [None]
  - CHRONIC OBSTRUCTIVE PULMONARY DISEASE [None]
  - GAIT DISTURBANCE [None]
  - HYPERVENTILATION [None]
  - INFECTION [None]
  - INFLAMMATION [None]
  - PNEUMONIA [None]
  - POST PROCEDURAL COMPLICATION [None]
  - PYREXIA [None]
  - SURGERY [None]
  - THORACIC OPERATION [None]
  - WEIGHT INCREASED [None]
